FAERS Safety Report 22122563 (Version 4)
Quarter: 2024Q2

REPORT INFORMATION
  Report Type: Report from Study
  Country: FR (occurrence: FR)
  Receive Date: 20230321
  Receipt Date: 20240510
  Transmission Date: 20240716
  Serious: Yes (Other)
  Sender: FDA-Public Use
  Company Number: FR-GILEAD-2022-0600756

PATIENT
  Sex: Female
  Weight: 63 kg

DRUGS (3)
  1. SACITUZUMAB GOVITECAN-HZIY [Suspect]
     Active Substance: SACITUZUMAB GOVITECAN-HZIY
     Indication: Triple negative breast cancer
     Dosage: 7 MG/KG C1D1 AND D8
     Route: 042
     Dates: start: 20220513, end: 20220520
  2. SACITUZUMAB GOVITECAN-HZIY [Suspect]
     Active Substance: SACITUZUMAB GOVITECAN-HZIY
     Dosage: 7 MG/KG, CYCLE 2, DAYS 1,8
     Route: 042
     Dates: start: 20220610, end: 20220617
  3. SACITUZUMAB GOVITECAN-HZIY [Suspect]
     Active Substance: SACITUZUMAB GOVITECAN-HZIY
     Dosage: 6.97
     Route: 042
     Dates: end: 20230221

REACTIONS (4)
  - Angioedema [Recovered/Resolved]
  - Oxygen saturation decreased [Unknown]
  - Hot flush [Unknown]
  - Off label use [Unknown]

NARRATIVE: CASE EVENT DATE: 20220101
